FAERS Safety Report 12586917 (Version 1)
Quarter: 2016Q3

REPORT INFORMATION
  Report Type: Spontaneous
  Country: US (occurrence: US)
  Receive Date: 20160725
  Receipt Date: 20160725
  Transmission Date: 20161109
  Serious: Yes (Other)
  Sender: FDA-Public Use
  Company Number: US-DRREDDYS-USA/USA/16/0081614

PATIENT
  Sex: Female
  Weight: 92.53 kg

DRUGS (6)
  1. KLONOPIN [Concomitant]
     Active Substance: CLONAZEPAM
     Indication: ANXIETY
     Dosage: 1MG PILL THREE TIMES A DAY AS NEEDED
     Route: 048
  2. NEURONTIN [Concomitant]
     Active Substance: GABAPENTIN
     Indication: MENTAL DISORDER
  3. PRAZOSIN [Concomitant]
     Active Substance: PRAZOSIN
     Indication: POST-TRAUMATIC STRESS DISORDER
     Dosage: AT BED TIME
     Route: 048
  4. NEURONTIN [Concomitant]
     Active Substance: GABAPENTIN
     Indication: PAIN MANAGEMENT
     Route: 048
  5. ZIPRASIDONE. [Suspect]
     Active Substance: ZIPRASIDONE
     Indication: DEPRESSION
     Route: 048
     Dates: start: 2016
  6. SERTRALINE [Concomitant]
     Active Substance: SERTRALINE HYDROCHLORIDE
     Indication: DEPRESSION
     Route: 048

REACTIONS (3)
  - Fall [Not Recovered/Not Resolved]
  - Tremor [Not Recovered/Not Resolved]
  - Memory impairment [Not Recovered/Not Resolved]
